FAERS Safety Report 4265659-0 (Version None)
Quarter: 2004Q1

REPORT INFORMATION
  Report Type: 
  Country: None (occurrence: None)
  Receive Date: 20040107
  Receipt Date: 20031029
  Transmission Date: 20041129
  Serious: Yes (Death, Life-Threatening, Disabling, Other)
  Sender: FDA-Public Use
  Company Number: US-GLAXOSMITHKLINE-A0432090A

PATIENT
  Age: 11 Year
  Sex: Female

DRUGS (3)
  1. ZOFRAN [Suspect]
     Indication: ILL-DEFINED DISORDER
     Dosage: 4MG SINGLE DOSE
     Route: 042
     Dates: start: 20030929, end: 20030929
  2. CEFUROXIM [Concomitant]
     Route: 042
  3. BIAXIN [Concomitant]

REACTIONS (4)
  - DIZZINESS [None]
  - HEADACHE [None]
  - OXYGEN SATURATION DECREASED [None]
  - RESPIRATORY FAILURE [None]
